FAERS Safety Report 14070356 (Version 3)
Quarter: 2018Q1

REPORT INFORMATION
  Report Type: Spontaneous
  Country: IT (occurrence: IT)
  Receive Date: 20171010
  Receipt Date: 20180103
  Transmission Date: 20180508
  Serious: Yes (Other)
  Sender: FDA-Public Use
  Company Number: IT-JNJFOC-20171003169

PATIENT
  Age: 47 Year
  Sex: Male
  Weight: 85 kg

DRUGS (4)
  1. HALCION [Suspect]
     Active Substance: TRIAZOLAM
     Indication: PRODUCT USED FOR UNKNOWN INDICATION
     Route: 048
  2. RISPERDAL [Suspect]
     Active Substance: RISPERIDONE
     Indication: PRODUCT USED FOR UNKNOWN INDICATION
     Dosage: STRENGTH: 2 MG
     Route: 048
     Dates: start: 20171003, end: 20171003
  3. RISPERDAL [Suspect]
     Active Substance: RISPERIDONE
     Indication: PRODUCT USED FOR UNKNOWN INDICATION
     Route: 048
  4. HALCION [Suspect]
     Active Substance: TRIAZOLAM
     Indication: PRODUCT USED FOR UNKNOWN INDICATION
     Route: 048
     Dates: start: 20171003, end: 20171003

REACTIONS (5)
  - Intentional self-injury [Unknown]
  - Intentional product misuse [Unknown]
  - Sopor [Unknown]
  - Tremor [Unknown]
  - Sluggishness [Unknown]

NARRATIVE: CASE EVENT DATE: 20171003
